FAERS Safety Report 23532660 (Version 1)
Quarter: 2024Q1

REPORT INFORMATION
  Report Type: Spontaneous
  Country: US (occurrence: US)
  Receive Date: 20240216
  Receipt Date: 20240216
  Transmission Date: 20240410
  Serious: No
  Sender: FDA-Public Use
  Company Number: US-PERRIGO-23US013915

PATIENT
  Age: 70 Year
  Sex: Female
  Weight: 71.655 kg

DRUGS (1)
  1. LOPERAMIDE HYDROCHLORIDE [Suspect]
     Active Substance: LOPERAMIDE HYDROCHLORIDE
     Indication: Diarrhoea
     Dosage: 4 MG, SINGLE
     Route: 048
     Dates: start: 20231205, end: 20231205

REACTIONS (4)
  - Oral discomfort [Recovered/Resolved]
  - Chest pain [Recovered/Resolved]
  - Feeling cold [Recovered/Resolved]
  - Ageusia [Recovered/Resolved]

NARRATIVE: CASE EVENT DATE: 20231205
